FAERS Safety Report 7606526-1 (Version None)
Quarter: 2011Q3

REPORT INFORMATION
  Report Type: 
  Country: None (occurrence: None)
  Receive Date: 20110713
  Receipt Date: 20110701
  Transmission Date: 20111222
  Serious: Yes (Other)
  Sender: FDA-Public Use
  Company Number: JP-CELGENEUS-087-21880-10101334

PATIENT
  Sex: Female
  Weight: 43.3 kg

DRUGS (28)
  1. BISPHOSPHONATES [Suspect]
     Route: 065
     Dates: end: 20100901
  2. BACTRIM [Concomitant]
     Indication: PROPHYLAXIS
     Dosage: 2 TABLET
     Route: 048
     Dates: start: 20100906, end: 20101012
  3. EPADEL [Concomitant]
     Indication: PROPHYLAXIS
     Route: 048
  4. NAUZELIN [Concomitant]
     Dosage: 1 TABLET
     Route: 048
     Dates: start: 20101005, end: 20101023
  5. REVLIMID [Suspect]
     Dosage: 5 MILLIGRAM
     Route: 048
     Dates: start: 20110222, end: 20110307
  6. DEXAMETHASONE [Suspect]
     Dosage: 12 MILLIGRAM
     Route: 048
     Dates: start: 20100908, end: 20100908
  7. DEXAMETHASONE [Suspect]
     Dosage: 8 MILLIGRAM
     Route: 048
     Dates: start: 20100909, end: 20100909
  8. DEXAMETHASONE [Suspect]
     Dosage: 20 MILLIGRAM
     Route: 048
     Dates: start: 20101005, end: 20101006
  9. DEXAMETHASONE [Suspect]
     Dosage: 12 MILLIGRAM
     Route: 048
     Dates: start: 20101007, end: 20101007
  10. MUCOSTA [Concomitant]
     Dosage: 4 TABLET
     Route: 048
     Dates: start: 20100903
  11. MAGMITT [Concomitant]
     Dosage: 2 TABLET
     Route: 048
  12. RISEDRONATE SODIUM [Concomitant]
     Dosage: 1 TABLET
     Route: 048
     Dates: end: 20100915
  13. REVLIMID [Suspect]
     Indication: MULTIPLE MYELOMA
     Dosage: 15 MILLIGRAM
     Route: 048
     Dates: start: 20100906, end: 20100924
  14. TRINOSIN [Concomitant]
     Dosage: 3 PACKS
     Route: 048
     Dates: start: 20100903, end: 20100909
  15. FORSENID [Concomitant]
     Dosage: 2 TABLET
     Route: 048
     Dates: start: 20100910
  16. MUCOSTA [Concomitant]
     Indication: PROPHYLAXIS
     Route: 048
  17. REVLIMID [Suspect]
     Dosage: 15 MILLIGRAM
     Route: 048
     Dates: start: 20101005, end: 20101015
  18. DEXAMETHASONE [Suspect]
     Dosage: 4 MILLIGRAM
     Route: 048
     Dates: start: 20100910, end: 20100910
  19. DEXAMETHASONE [Suspect]
     Dosage: 4 MILLIGRAM
     Route: 048
     Dates: start: 20101009, end: 20101009
  20. REVLIMID [Suspect]
     Dosage: 5 MILLIGRAM
     Route: 048
     Dates: start: 20110118, end: 20110131
  21. DEXAMETHASONE [Suspect]
     Indication: MULTIPLE MYELOMA
     Dosage: 20 MILLIGRAM
     Route: 048
     Dates: start: 20100906, end: 20100907
  22. MARZULENE [Concomitant]
     Dosage: 3 PACKS
     Route: 048
     Dates: start: 20100910
  23. DEXAMETHASONE [Suspect]
     Dosage: 8 MILLIGRAM
     Route: 048
     Dates: start: 20101008, end: 20101008
  24. NABOAL GEL [Concomitant]
     Indication: MULTIPLE MYELOMA
     Dosage: 1 TUBE
     Route: 065
     Dates: start: 20100906, end: 20101019
  25. LIVOSTIN [Concomitant]
     Route: 055
     Dates: start: 20100903
  26. EPADEL [Concomitant]
     Dosage: 600MG, 1 PACK
     Route: 048
     Dates: start: 20100910
  27. INTENURSE PAP [Concomitant]
     Indication: MULTIPLE MYELOMA
     Dosage: 2 PATCHES
     Route: 065
     Dates: start: 20100903, end: 20100923
  28. ROHYPNOL [Concomitant]
     Dosage: 1 TABLET
     Route: 048

REACTIONS (6)
  - RASH [None]
  - WHITE BLOOD CELL COUNT DECREASED [None]
  - OSTEONECROSIS OF JAW [None]
  - GINGIVITIS [None]
  - NEUTROPHIL COUNT DECREASED [None]
  - PLATELET COUNT DECREASED [None]
